FAERS Safety Report 15834196 (Version 1)
Quarter: 2019Q1

REPORT INFORMATION
  Report Type: Spontaneous
  Country: US (occurrence: US)
  Receive Date: 20190116
  Receipt Date: 20190116
  Transmission Date: 20190417
  Serious: No
  Sender: FDA-Public Use
  Company Number: US-009507513-1901USA003204

PATIENT
  Age: 62 Year
  Sex: Male

DRUGS (2)
  1. CELESTONE SOLUSPAN [Suspect]
     Active Substance: BETAMETHASONE ACETATE\BETAMETHASONE SODIUM PHOSPHATE
     Indication: VERTEBRAL FORAMINAL STENOSIS
     Dosage: 12 MILLIGRAM
     Route: 008
  2. SODIUM CHLORIDE. [Concomitant]
     Active Substance: SODIUM CHLORIDE
     Indication: VERTEBRAL FORAMINAL STENOSIS
     Dosage: 2 MILLILITER
     Route: 008

REACTIONS (1)
  - Hiccups [Recovered/Resolved]
